FAERS Safety Report 12980502 (Version 2)
Quarter: 2017Q2

REPORT INFORMATION
  Report Type: Spontaneous
  Country: US (occurrence: US)
  Receive Date: 20161128
  Receipt Date: 20170426
  Transmission Date: 20170830
  Serious: Yes (Other)
  Sender: FDA-Public Use
  Company Number: US-PFIZER INC-2016543528

PATIENT
  Sex: Female
  Weight: 2.98 kg

DRUGS (2)
  1. ALPROSTADIL. [Suspect]
     Active Substance: ALPROSTADIL
     Indication: HEART DISEASE CONGENITAL
     Dosage: 0.05 TO 0.1 NG/KG/MINUTE
     Route: 042
  2. ALPROSTADIL. [Suspect]
     Active Substance: ALPROSTADIL
     Indication: PATENT DUCTUS ARTERIOSUS

REACTIONS (2)
  - Panniculitis [Recovered/Resolved]
  - Fat necrosis [Recovered/Resolved]
